FAERS Safety Report 8077159-0 (Version None)
Quarter: 2012Q1

REPORT INFORMATION
  Report Type: 
  Country: None (occurrence: None)
  Receive Date: 20120127
  Receipt Date: 20120123
  Transmission Date: 20120608
  Serious: Yes (Other)
  Sender: FDA-Public Use
  Company Number: PHHY2012RU006034

PATIENT
  Sex: Female

DRUGS (1)
  1. MIACALCIN [Suspect]
     Route: 045

REACTIONS (2)
  - RETINAL DETACHMENT [None]
  - VISUAL IMPAIRMENT [None]
